FAERS Safety Report 15620218 (Version 2)
Quarter: 2019Q2

REPORT INFORMATION
  Report Type: Spontaneous
  Country: CA (occurrence: CA)
  Receive Date: 20181115
  Receipt Date: 20190530
  Transmission Date: 20190711
  Serious: Yes (Other)
  Sender: FDA-Public Use
  Company Number: CA-SUN PHARMACEUTICAL INDUSTRIES LTD-2018US-191241

PATIENT
  Age: 83 Year
  Sex: Female

DRUGS (3)
  1. HOMATROPINE [Concomitant]
     Active Substance: HOMATROPINE\HOMATROPINE HYDROBROMIDE
     Indication: EPSTEIN-BARR VIRUS INFECTION
     Dosage: 2 PERCENT THRICE A DAY
     Route: 061
  2. DEXAMETHASONE. [Concomitant]
     Active Substance: DEXAMETHASONE
     Indication: EPSTEIN-BARR VIRUS INFECTION
     Dosage: EVERY 2 HOURS
     Route: 061
  3. VALACYCLOVIR [Suspect]
     Active Substance: VALACYCLOVIR HYDROCHLORIDE
     Indication: EPSTEIN-BARR VIRUS INFECTION
     Dosage: 2 GRAM, TID
     Route: 048

REACTIONS (1)
  - Drug ineffective [Not Recovered/Not Resolved]
